FAERS Safety Report 12874220 (Version 1)
Quarter: 2016Q4

REPORT INFORMATION
  Report Type: Spontaneous
  Country: AU (occurrence: AU)
  Receive Date: 20161021
  Receipt Date: 20161021
  Transmission Date: 20170207
  Serious: Yes (Hospitalization, Other)
  Sender: FDA-Public Use
  Company Number: AU-KADMON PHARMACEUTICALS, LLC-KAD201610-003738

PATIENT
  Age: 41 Year
  Sex: Male

DRUGS (4)
  1. RIBAVIRIN. [Suspect]
     Active Substance: RIBAVIRIN
     Indication: HEPATITIS C
     Dosage: TABLET
     Route: 048
  2. VIEKIRA PAK [Suspect]
     Active Substance: DASABUVIR\OMBITASVIR\PARITAPREVIR\RITONAVIR
     Indication: HEPATITIS C
     Dosage: TABLET
     Route: 048
  3. BUDESONIDE. [Suspect]
     Active Substance: BUDESONIDE
     Route: 048
  4. BUDESONIDE. [Suspect]
     Active Substance: BUDESONIDE
     Indication: AUTOIMMUNE HEPATITIS
     Route: 048

REACTIONS (18)
  - Myopathy [Unknown]
  - Irritability [Unknown]
  - Disinhibition [Unknown]
  - Contusion [Unknown]
  - Oedema peripheral [Unknown]
  - Muscular weakness [Recovering/Resolving]
  - Muscle atrophy [Recovering/Resolving]
  - Mobility decreased [Unknown]
  - Central obesity [Recovering/Resolving]
  - Face oedema [Unknown]
  - Impaired healing [Unknown]
  - Pressure of speech [Unknown]
  - Fatigue [Unknown]
  - Cushing^s syndrome [Unknown]
  - Drug interaction [Unknown]
  - Night sweats [Unknown]
  - Weight decreased [Unknown]
  - Hypertension [Unknown]
